FAERS Safety Report 17076047 (Version 1)
Quarter: 2019Q4

REPORT INFORMATION
  Report Type: Spontaneous
  Country: US (occurrence: US)
  Receive Date: 20191126
  Receipt Date: 20191126
  Transmission Date: 20200122
  Serious: Yes (Hospitalization, Other)
  Sender: FDA-Public Use
  Company Number: US-GUERBET-US-20190278

PATIENT
  Age: 63 Year
  Sex: Female
  Weight: 53 kg

DRUGS (1)
  1. DOTAREM [Suspect]
     Active Substance: GADOTERATE MEGLUMINE
     Indication: MAGNETIC RESONANCE IMAGING BRAIN
     Route: 042
     Dates: start: 20191108, end: 20191108

REACTIONS (5)
  - Swelling face [Recovering/Resolving]
  - Erythema [Recovering/Resolving]
  - Eye pruritus [Recovering/Resolving]
  - Ocular hyperaemia [Recovering/Resolving]
  - Cough [Recovering/Resolving]

NARRATIVE: CASE EVENT DATE: 20191108
